FAERS Safety Report 8792127 (Version 1)
Quarter: 2012Q4

REPORT INFORMATION
  Report Type: 
  Country: US (occurrence: US)
  Receive Date: 20120918
  Receipt Date: 20120918
  Transmission Date: 20130627
  Serious: Yes (Hospitalization)
  Sender: FDA-Public Use
  Company Number: US-009507513-1209USA006019

PATIENT

DRUGS (3)
  1. SAPHRIS [Suspect]
     Dosage: 4 DF, UNK
     Route: 060
  2. LOW-OGESTREL [Concomitant]
  3. CITALOPRAM [Concomitant]

REACTIONS (6)
  - Pharyngeal oedema [Unknown]
  - Tremor [Unknown]
  - Dysarthria [Unknown]
  - Drooling [Unknown]
  - Oedema mouth [Unknown]
  - Swelling face [Unknown]
